FAERS Safety Report 23259777 (Version 3)
Quarter: 2024Q2

REPORT INFORMATION
  Report Type: Spontaneous
  Country: JP (occurrence: JP)
  Receive Date: 20231204
  Receipt Date: 20240419
  Transmission Date: 20240716
  Serious: Yes (Other)
  Sender: FDA-Public Use
  Company Number: JP-Eisai-EC-2023-154230

PATIENT
  Age: 74 Year
  Sex: Male

DRUGS (21)
  1. LENVATINIB [Suspect]
     Active Substance: LENVATINIB
     Indication: Renal cell carcinoma
     Route: 048
     Dates: start: 20221208, end: 20230115
  2. LENVATINIB [Suspect]
     Active Substance: LENVATINIB
     Route: 048
     Dates: start: 20230209, end: 20230216
  3. PEMBROLIZUMAB [Suspect]
     Active Substance: PEMBROLIZUMAB
     Indication: Renal cell carcinoma
     Route: 042
     Dates: start: 20221208, end: 20221208
  4. PEMBROLIZUMAB [Suspect]
     Active Substance: PEMBROLIZUMAB
     Route: 042
     Dates: end: 20230115
  5. SOLU-CORTEF [Concomitant]
     Active Substance: HYDROCORTISONE SODIUM SUCCINATE
     Indication: Immune-mediated adrenal insufficiency
     Route: 065
     Dates: start: 20230116, end: 20230118
  6. SOLU-CORTEF [Concomitant]
     Active Substance: HYDROCORTISONE SODIUM SUCCINATE
     Dosage: FREQUENCY UNKNOWN.
     Route: 065
     Dates: start: 20230505, end: 20230517
  7. SOLU-CORTEF [Concomitant]
     Active Substance: HYDROCORTISONE SODIUM SUCCINATE
     Dosage: FREQUENCY UNKNOWN.
     Route: 065
     Dates: start: 20230518, end: 20230523
  8. SOLU-CORTEF [Concomitant]
     Active Substance: HYDROCORTISONE SODIUM SUCCINATE
     Dosage: FREQUENCY UNKNOWN.
     Route: 065
     Dates: start: 20230524, end: 20230524
  9. PREDONINE [Concomitant]
     Active Substance: PREDNISOLONE
     Indication: Immune-mediated enterocolitis
     Route: 065
     Dates: start: 20230119, end: 20230122
  10. PREDONINE [Concomitant]
     Active Substance: PREDNISOLONE
     Route: 065
     Dates: start: 20230123, end: 20230124
  11. PREDONINE [Concomitant]
     Active Substance: PREDNISOLONE
     Route: 048
     Dates: start: 20230125, end: 20230131
  12. PREDONINE [Concomitant]
     Active Substance: PREDNISOLONE
     Route: 048
     Dates: start: 20230201, end: 20230209
  13. PREDONINE [Concomitant]
     Active Substance: PREDNISOLONE
     Route: 048
     Dates: start: 20230210, end: 20230216
  14. PREDONINE [Concomitant]
     Active Substance: PREDNISOLONE
     Route: 048
     Dates: start: 20230217, end: 20230308
  15. PREDONINE [Concomitant]
     Active Substance: PREDNISOLONE
     Route: 048
     Dates: start: 20230309, end: 20230322
  16. PREDONINE [Concomitant]
     Active Substance: PREDNISOLONE
     Route: 048
     Dates: start: 20230323, end: 20230405
  17. PREDONINE [Concomitant]
     Active Substance: PREDNISOLONE
     Route: 048
     Dates: start: 20230406, end: 20230504
  18. CORTRIL [Concomitant]
     Active Substance: HYDROCORTISONE
     Indication: Immune-mediated adrenal insufficiency
     Route: 065
     Dates: start: 20230525, end: 20230531
  19. CORTRIL [Concomitant]
     Active Substance: HYDROCORTISONE
     Route: 065
     Dates: start: 20230601, end: 20230606
  20. CORTRIL [Concomitant]
     Active Substance: HYDROCORTISONE
     Route: 065
     Dates: start: 20230607
  21. LEVOTHYROXINE SODIUM [Concomitant]
     Active Substance: LEVOTHYROXINE SODIUM
     Indication: Immune-mediated hypothyroidism
     Route: 065
     Dates: start: 20230202

REACTIONS (1)
  - Adrenocortical insufficiency acute [Unknown]

NARRATIVE: CASE EVENT DATE: 20230417
